FAERS Safety Report 5665345-6 (Version None)
Quarter: 2008Q1

REPORT INFORMATION
  Report Type: 
  Country: None (occurrence: None)
  Receive Date: 20080314
  Receipt Date: 20080229
  Transmission Date: 20080703
  Serious: Yes (Other)
  Sender: FDA-Public Use
  Company Number: US-GENENTECH-256929

PATIENT
  Age: 17 Year
  Sex: Female

DRUGS (15)
  1. XOLAIR [Suspect]
     Indication: ASTHMA
     Dosage: 375 MG, Q2W
     Route: 058
     Dates: start: 20050101
  2. SINGULAIR [Concomitant]
     Indication: DRUG USE FOR UNKNOWN INDICATION
  3. XOPENEX [Concomitant]
     Indication: DRUG USE FOR UNKNOWN INDICATION
  4. ATROVENT [Concomitant]
     Indication: DRUG USE FOR UNKNOWN INDICATION
  5. MUCINEX [Concomitant]
     Indication: DRUG USE FOR UNKNOWN INDICATION
  6. FLONASE [Concomitant]
     Indication: DRUG USE FOR UNKNOWN INDICATION
  7. EPIPEN [Concomitant]
     Indication: DRUG USE FOR UNKNOWN INDICATION
  8. ASTELIN [Concomitant]
     Indication: DRUG USE FOR UNKNOWN INDICATION
  9. SIMBICORT [Concomitant]
     Indication: DRUG USE FOR UNKNOWN INDICATION
  10. NORTRIPTYLINE HCL [Concomitant]
     Indication: DRUG USE FOR UNKNOWN INDICATION
  11. LEXAPRO [Concomitant]
     Indication: DRUG USE FOR UNKNOWN INDICATION
  12. BUSPAR [Concomitant]
     Indication: DRUG USE FOR UNKNOWN INDICATION
  13. NECON [Concomitant]
     Indication: DRUG USE FOR UNKNOWN INDICATION
  14. PROTONIX [Concomitant]
     Indication: DRUG USE FOR UNKNOWN INDICATION
  15. KEPPRA [Concomitant]
     Indication: DRUG USE FOR UNKNOWN INDICATION

REACTIONS (1)
  - CONVULSION [None]
